FAERS Safety Report 7079000-1 (Version None)
Quarter: 2010Q4

REPORT INFORMATION
  Report Type: 
  Country: None (occurrence: None)
  Receive Date: 20101102
  Receipt Date: 20101022
  Transmission Date: 20110411
  Serious: Yes (Hospitalization, Other)
  Sender: FDA-Public Use
  Company Number: GB-ELI_LILLY_AND_COMPANY-GB201010005284

PATIENT
  Age: 51 Year

DRUGS (1)
  1. EFFIENT [Suspect]

REACTIONS (1)
  - CEREBROVASCULAR ACCIDENT [None]
